FAERS Safety Report 16501255 (Version 3)
Quarter: 2019Q3

REPORT INFORMATION
  Report Type: Report from Study
  Country: US (occurrence: US)
  Receive Date: 20190701
  Receipt Date: 20190729
  Transmission Date: 20191004
  Serious: Yes (Other)
  Sender: FDA-Public Use
  Company Number: PHEH2019US027521

PATIENT
  Sex: Female

DRUGS (1)
  1. ENTRESTO [Suspect]
     Active Substance: SACUBITRIL\VALSARTAN
     Indication: CARDIAC FAILURE CHRONIC
     Dosage: UNK UNK, BID
     Route: 048

REACTIONS (10)
  - Malaise [Unknown]
  - Nervousness [Unknown]
  - Somnolence [Unknown]
  - Blood pressure decreased [Unknown]
  - Gait disturbance [Unknown]
  - Thirst [Unknown]
  - Drug intolerance [Unknown]
  - Dizziness [Unknown]
  - Balance disorder [Unknown]
  - Loss of consciousness [Unknown]
